FAERS Safety Report 8797311 (Version 1)
Quarter: 2012Q4

REPORT INFORMATION
  Report Type: 
  Country: DK (occurrence: DK)
  Receive Date: 20120919
  Receipt Date: 20120919
  Transmission Date: 20130627
  Serious: Yes (Death, Hospitalization)
  Sender: FDA-Public Use
  Company Number: DK-ROCHE-1064821

PATIENT
  Age: 62 Year
  Sex: Female
  Weight: 63 kg

DRUGS (4)
  1. XELODA [Suspect]
     Indication: COLORECTAL CANCER METASTATIC
     Route: 048
  2. XELODA [Suspect]
     Indication: CAMPYLOBACTER INFECTION
     Dosage: 1650 mg + 1650 mg
     Route: 065
  3. OXALIPLATIN [Suspect]
     Indication: COLORECTAL CANCER METASTATIC
     Route: 042
  4. OXALIPLATIN [Concomitant]
     Indication: CAMPYLOBACTER INFECTION

REACTIONS (6)
  - Diarrhoea [Fatal]
  - Dehydration [Fatal]
  - Febrile neutropenia [Fatal]
  - Sepsis [Fatal]
  - Vomiting [Unknown]
  - Weight decreased [Unknown]
